FAERS Safety Report 6538115-4 (Version None)
Quarter: 2010Q1

REPORT INFORMATION
  Report Type: 
  Country: None (occurrence: None)
  Receive Date: 20100106
  Receipt Date: 20081031
  Transmission Date: 20100710
  Serious: Yes (Hospitalization)
  Sender: FDA-Public Use
  Company Number: DSA_32612_2008

PATIENT
  Sex: Female
  Weight: 54.4316 kg

DRUGS (3)
  1. CARDIZEM [Suspect]
     Indication: ARRHYTHMIA
     Dosage: (1 DF QD ORAL)
     Route: 048
  2. PROPULSID [Suspect]
     Indication: OESOPHAGEAL DISORDER
     Dosage: (1 DF QD ORAL)
     Route: 048
  3. LASIX [Concomitant]

REACTIONS (3)
  - CARDIAC FAILURE CONGESTIVE [None]
  - DRUG TOXICITY [None]
  - INHIBITORY DRUG INTERACTION [None]
